FAERS Safety Report 12503741 (Version 1)
Quarter: 2016Q2

REPORT INFORMATION
  Report Type: Spontaneous
  Country: US (occurrence: None)
  Receive Date: 20160627
  Receipt Date: 20160627
  Transmission Date: 20160815
  Serious: Yes (Hospitalization)
  Sender: FDA-Public Use
  Company Number: None

PATIENT
  Age: 61 Year
  Sex: Male
  Weight: 66.4 kg

DRUGS (15)
  1. PALBOCICLIB [Suspect]
     Active Substance: PALBOCICLIB
     Indication: LARYNGEAL SQUAMOUS CELL CARCINOMA
     Dosage: 120 ,G DAYS 1-21  OF 20 DAYS PO
     Route: 048
     Dates: start: 20160114, end: 20160621
  2. CETUXIMAB [Suspect]
     Active Substance: CETUXIMAB
     Indication: LARYNGEAL SQUAMOUS CELL CARCINOMA
     Dosage: 250 MG/M2 WEEKLY IV
     Route: 042
     Dates: start: 20160114, end: 20160616
  3. LYRICA. [Concomitant]
  4. GABAPENTIN. [Concomitant]
     Active Substance: GABAPENTIN
  5. PREDNISONE. [Concomitant]
     Active Substance: PREDNISONE
  6. PROCHLORPERAZINE. [Concomitant]
     Active Substance: PROCHLORPERAZINE
  7. HINOCYCLINE [Concomitant]
  8. SULFAMETHOXAZOLE [Concomitant]
     Active Substance: SULFAMETHOXAZOLE
  9. BUPROPION. [Concomitant]
     Active Substance: BUPROPION
  10. FAMOTIDINE. [Concomitant]
     Active Substance: FAMOTIDINE
  11. FENTANYL. [Concomitant]
  12. OXYCODONE [Concomitant]
     Active Substance: OXYCODONE
  13. SERTRALINE [Concomitant]
     Active Substance: SERTRALINE HYDROCHLORIDE
  14. TAMSUIOSIN. [Concomitant]
  15. CEVIMELINE. [Concomitant]
     Active Substance: CEVIMELINE

REACTIONS (1)
  - Pneumonia [None]

NARRATIVE: CASE EVENT DATE: 20160621
